FAERS Safety Report 15215843 (Version 1)
Quarter: 2018Q3

REPORT INFORMATION
  Report Type: Spontaneous
  Country: US (occurrence: US)
  Receive Date: 20180730
  Receipt Date: 20180730
  Transmission Date: 20181010
  Serious: Yes (Hospitalization)
  Sender: FDA-Public Use
  Company Number: US-PFIZER INC-2018299590

PATIENT
  Age: 61 Year
  Sex: Female

DRUGS (1)
  1. ESTRING [Suspect]
     Active Substance: ESTRADIOL
     Indication: HORMONE REPLACEMENT THERAPY
     Dosage: UNK
     Dates: start: 20171231

REACTIONS (6)
  - Stomatitis [Unknown]
  - Urticaria [Not Recovered/Not Resolved]
  - Anaphylactic reaction [Unknown]
  - Mouth swelling [Unknown]
  - Product use in unapproved indication [Unknown]
  - Drug interaction [Unknown]

NARRATIVE: CASE EVENT DATE: 20171231
